FAERS Safety Report 4434674-6 (Version None)
Quarter: 2004Q3

REPORT INFORMATION
  Report Type: 
  Country: None (occurrence: None)
  Receive Date: 20040827
  Receipt Date: 20040816
  Transmission Date: 20050211
  Serious: Yes (Death)
  Sender: FDA-Public Use
  Company Number: US-JNJFOC-20040703425

PATIENT
  Sex: Male
  Weight: 143.79 kg

DRUGS (17)
  1. REMICADE [Suspect]
     Route: 042
  2. REMICADE [Suspect]
     Route: 042
  3. REMICADE [Suspect]
     Route: 042
  4. REMICADE [Suspect]
     Route: 042
  5. REMICADE [Suspect]
     Route: 042
  6. REMICADE [Suspect]
     Route: 042
  7. REMICADE [Suspect]
     Route: 042
  8. REMICADE [Suspect]
     Route: 042
  9. REMICADE [Suspect]
     Route: 042
  10. REMICADE [Suspect]
     Route: 042
  11. REMICADE [Suspect]
     Route: 042
  12. REMICADE [Suspect]
     Route: 042
  13. REMICADE [Suspect]
     Indication: ANKYLOSING SPONDYLITIS
     Route: 042
  14. ALEVE [Concomitant]
     Dosage: AS NEEDED.
     Route: 049
  15. IBUPROFEN [Concomitant]
     Dosage: AS NEEDED.
     Route: 049
  16. METHOTREXATE [Concomitant]
     Dosage: 10-15 MG
     Route: 049
  17. FOLIC ACID [Concomitant]
     Dosage: PILLS
     Route: 049

REACTIONS (1)
  - SUDDEN DEATH [None]
